FAERS Safety Report 6469920-0 (Version None)
Quarter: 2009Q4

REPORT INFORMATION
  Report Type: 
  Country: None (occurrence: None)
  Receive Date: 20091203
  Receipt Date: 20081215
  Transmission Date: 20100525
  Serious: Yes (Hospitalization)
  Sender: FDA-Public Use
  Company Number: TR-ELI_LILLY_AND_COMPANY-TR200710005829

PATIENT
  Age: 53 Year
  Sex: Female
  Weight: 88 kg

DRUGS (2)
  1. EVISTA [Suspect]
     Indication: OSTEOPOROSIS POSTMENOPAUSAL
     Dosage: 60 MG, DAILY (1/D) (AT NOON EVERY DAY)
     Route: 048
     Dates: start: 20071017, end: 20071018
  2. CALCIUM CARBONATE W/COLECALCIFEROL [Concomitant]
     Indication: OSTEOPOROSIS
     Dosage: UNK UNK, DAILY (1/D)
     Route: 048
     Dates: start: 20071017

REACTIONS (3)
  - HAEMORRHAGE URINARY TRACT [None]
  - PAIN [None]
  - VAGINAL HAEMORRHAGE [None]
